FAERS Safety Report 10382810 (Version 3)
Quarter: 2019Q2

REPORT INFORMATION
  Report Type: Report from Study
  Country: US (occurrence: US)
  Receive Date: 20140813
  Receipt Date: 20190611
  Transmission Date: 20190711
  Serious: Yes (Other)
  Sender: FDA-Public Use
  Company Number: US-SA-2013SA112546

PATIENT
  Age: 34 Year
  Sex: Male
  Weight: 77.3 kg

DRUGS (2)
  1. AGALSIDASE BETA [Suspect]
     Active Substance: AGALSIDASE BETA
     Dosage: 0.9 MG/KG, QOW
     Route: 042
     Dates: start: 201203
  2. AGALSIDASE BETA [Suspect]
     Active Substance: AGALSIDASE BETA
     Indication: FABRY^S DISEASE
     Dosage: 70 UNK, Q2
     Route: 042
     Dates: start: 20120312

REACTIONS (3)
  - Chills [Not Recovered/Not Resolved]
  - Joint swelling [Recovering/Resolving]
  - Renal failure [Recovering/Resolving]

NARRATIVE: CASE EVENT DATE: 20190604
